FAERS Safety Report 13664748 (Version 1)
Quarter: 2017Q2

REPORT INFORMATION
  Report Type: Spontaneous
  Country: MX (occurrence: MX)
  Receive Date: 20170619
  Receipt Date: 20170619
  Transmission Date: 20170830
  Serious: Yes (Other)
  Sender: FDA-Public Use
  Company Number: MX-009507513-1706MEX007681

PATIENT
  Age: 31 Year
  Sex: Male

DRUGS (4)
  1. BRIDION [Suspect]
     Active Substance: SUGAMMADEX
     Indication: MEDIASTINOSCOPY
     Dosage: UNK, UNKNOWN
     Route: 040
  2. ESMERON [Suspect]
     Active Substance: ROCURONIUM BROMIDE
     Indication: MEDIASTINOSCOPY
     Dosage: UNK, UNKNOWN
     Route: 065
  3. MIDAZOLAM [Concomitant]
     Active Substance: MIDAZOLAM HYDROCHLORIDE
  4. PROPOFOL. [Concomitant]
     Active Substance: PROPOFOL

REACTIONS (1)
  - Seizure [Recovered/Resolved]
